FAERS Safety Report 7823962-9 (Version None)
Quarter: 2011Q4

REPORT INFORMATION
  Report Type: 
  Country: None (occurrence: None)
  Receive Date: 20111019
  Receipt Date: 20111011
  Transmission Date: 20120403
  Serious: No
  Sender: FDA-Public Use
  Company Number: TW-JNJFOC-20111006610

PATIENT
  Age: 63 Year
  Sex: Male

DRUGS (4)
  1. CEFAZOLIN [Suspect]
     Indication: ABDOMINAL PAIN
     Route: 065
     Dates: start: 20110418, end: 20110422
  2. FENTANYL [Suspect]
     Indication: ABDOMINAL PAIN
     Route: 062
  3. GENTAMICIN [Suspect]
     Indication: ABDOMINAL PAIN
     Route: 065
     Dates: start: 20110418, end: 20110422
  4. METRONIDAZOLE [Suspect]
     Indication: ABDOMINAL PAIN
     Route: 041
     Dates: start: 20110418, end: 20110422

REACTIONS (2)
  - APPLICATION SITE PRURITUS [None]
  - WRONG TECHNIQUE IN DRUG USAGE PROCESS [None]
